FAERS Safety Report 7741982-X (Version None)
Quarter: 2011Q3

REPORT INFORMATION
  Report Type: 
  Country: None (occurrence: None)
  Receive Date: 20110912
  Receipt Date: 20110901
  Transmission Date: 20111222
  Serious: Yes (Hospitalization)
  Sender: FDA-Public Use
  Company Number: FR-JNJFOC-20110902193

PATIENT
  Sex: Female

DRUGS (6)
  1. MIRTAZAPINE [Suspect]
     Indication: PRODUCT USED FOR UNKNOWN INDICATION
     Route: 048
     Dates: start: 20101001, end: 20110401
  2. RENITEC (ENALAPRIL) [Suspect]
     Route: 048
     Dates: start: 20101013, end: 20110515
  3. RENITEC (ENALAPRIL) [Suspect]
     Route: 048
  4. HALDOL [Suspect]
     Indication: PRODUCT USED FOR UNKNOWN INDICATION
     Route: 048
     Dates: start: 20101001, end: 20110401
  5. RENITEC (ENALAPRIL) [Suspect]
     Indication: HYPERTENSION
     Route: 048
     Dates: end: 20110527
  6. PERINDOPRIL ERBUMINE [Concomitant]
     Indication: HYPERTENSION
     Route: 048
     Dates: start: 20110527

REACTIONS (3)
  - HYPONATRAEMIA [None]
  - ABNORMAL BEHAVIOUR [None]
  - SOMNOLENCE [None]
